FAERS Safety Report 9403428 (Version 2)
Quarter: 2014Q2

REPORT INFORMATION
  Report Type: Spontaneous
  Country: FR (occurrence: FR)
  Receive Date: 20130716
  Receipt Date: 20140627
  Transmission Date: 20141212
  Serious: Yes (Hospitalization)
  Sender: FDA-Public Use
  Company Number: FR-UCBSA-091298

PATIENT
  Age: 46 Year
  Sex: Female

DRUGS (1)
  1. CIMZIA [Suspect]
     Route: 058
     Dates: start: 20130325, end: 20130422

REACTIONS (4)
  - Face oedema [Recovered/Resolved]
  - Erythema [Recovered/Resolved]
  - Chest discomfort [Recovered/Resolved]
  - Injection site reaction [Recovered/Resolved]
